FAERS Safety Report 5071731-8 (Version None)
Quarter: 2006Q3

REPORT INFORMATION
  Report Type: 
  Country: None (occurrence: None)
  Receive Date: 20060801
  Receipt Date: 20060717
  Transmission Date: 20061208
  Serious: Yes (Hospitalization)
  Sender: FDA-Public Use
  Company Number: L06-ITA-02873-01

PATIENT
  Age: 50 Year
  Sex: Male
  Weight: 85 kg

DRUGS (3)
  1. PROPRANOLOL [Suspect]
     Indication: COMPLETED SUICIDE
     Dosage: 1600 MG ONCE
  2. HYDROCHLORIC ACID [Suspect]
     Indication: COMPLETED SUICIDE
     Dosage: 150 ML ONCE
  3. OXAZEPAM [Suspect]
     Indication: COMPLETED SUICIDE

REACTIONS (9)
  - BRADYCARDIA [None]
  - CARDIAC ARREST [None]
  - ELECTROCARDIOGRAM QRS COMPLEX SHORTENED [None]
  - GENERAL PHYSICAL HEALTH DETERIORATION [None]
  - HYPOVOLAEMIA [None]
  - METABOLIC ACIDOSIS [None]
  - OVERDOSE [None]
  - SHOCK [None]
  - SUICIDE ATTEMPT [None]
